FAERS Safety Report 9523953 (Version 1)
Quarter: 2013Q1

REPORT INFORMATION
  Report Type: Spontaneous
  Country: US (occurrence: None)
  Receive Date: 20130313
  Receipt Date: 20130313
  Transmission Date: 20140127
  Serious: No
  Sender: FDA-Public Use
  Company Number: 1000027551

PATIENT
  Sex: Female

DRUGS (2)
  1. SAVELLA [Suspect]
  2. NORTRIPTYLINE (NORTRIPTYLINE) [Suspect]

REACTIONS (1)
  - Poisoning [None]
